FAERS Safety Report 10182250 (Version 1)
Quarter: 2014Q2

REPORT INFORMATION
  Report Type: Spontaneous
  Country: GB (occurrence: GB)
  Receive Date: 20140520
  Receipt Date: 20140520
  Transmission Date: 20141212
  Serious: Yes (Other)
  Sender: FDA-Public Use
  Company Number: GB-ACCORD-023755

PATIENT
  Age: 80 Year
  Sex: Female
  Weight: 95.26 kg

DRUGS (15)
  1. DICLOFENAC [Concomitant]
     Dates: start: 20140219, end: 20140319
  2. TRAMADOL/TRAMADOL HYDROCHLORIDE [Suspect]
     Indication: PRODUCT USED FOR UNKNOWN INDICATION
     Dates: start: 20140422
  3. INDAPAMIDE/INDAPAMIDE HEMIHYDRATE [Concomitant]
     Dates: start: 20140103
  4. SECURON [Concomitant]
     Dates: start: 20140103
  5. DIHYDROCODEINE [Concomitant]
     Dates: start: 20140103
  6. ROSUVASTATIN [Concomitant]
     Dates: start: 20140103
  7. ALVERINE [Concomitant]
     Dates: start: 20140103
  8. ALLOPURINOL [Concomitant]
     Dates: start: 20140103
  9. CO-CODAMOL [Concomitant]
     Dates: start: 20140103
  10. LEVOTHYROXINE [Concomitant]
     Dates: start: 20140103
  11. PHOLCODINE [Concomitant]
     Dates: start: 20140124, end: 20140206
  12. LOPERAMIDE [Concomitant]
     Dates: start: 20140103
  13. LISINOPRIL [Concomitant]
     Dates: start: 20140103
  14. OMEPRAZOLE [Concomitant]
     Dates: start: 20140103
  15. METFORMIN [Concomitant]
     Dates: start: 20140103

REACTIONS (1)
  - Swelling face [Recovered/Resolved]
